FAERS Safety Report 6781912-0 (Version None)
Quarter: 2010Q2

REPORT INFORMATION
  Report Type: 
  Country: None (occurrence: None)
  Receive Date: 20100621
  Receipt Date: 20100607
  Transmission Date: 20101027
  Serious: Yes (Disabling)
  Sender: FDA-Public Use
  Company Number: CA-ASTRAZENECA-2010SE26923

PATIENT
  Age: 74 Year
  Sex: Female
  Weight: 81.6 kg

DRUGS (5)
  1. CRESTOR [Suspect]
     Route: 048
  2. MEVACOR [Suspect]
     Route: 048
  3. COUMADIN [Concomitant]
     Route: 048
  4. HYZAAR [Concomitant]
     Route: 065
  5. LOVAZA [Concomitant]
     Route: 065

REACTIONS (5)
  - FATIGUE [None]
  - MYALGIA [None]
  - PAIN [None]
  - PAIN IN EXTREMITY [None]
  - PARAESTHESIA [None]
